FAERS Safety Report 8895255 (Version 1)
Quarter: 2012Q4

REPORT INFORMATION
  Report Type: 
  Country: US (occurrence: US)
  Receive Date: 20121107
  Receipt Date: 20121107
  Transmission Date: 20130627
  Serious: No
  Sender: FDA-Public Use
  Company Number: US-AMGEN-USASP2011056478

PATIENT
  Age: 39 Year
  Sex: Male

DRUGS (6)
  1. ENBREL [Suspect]
     Dosage: 50 mg, qwk
  2. CELEBREX [Concomitant]
     Dosage: 100 mg, UNK
  3. MULTIVITAMIN [Concomitant]
     Dosage: 1 UNK, UNK
  4. TYLENOL [Concomitant]
     Dosage: 500 mg, UNK
  5. VITAMIN D [Concomitant]
     Dosage: 400 IU, UNK
  6. ASPIRIN [Concomitant]
     Dosage: 81 mg, UNK

REACTIONS (1)
  - Skin disorder [Unknown]
